FAERS Safety Report 24190284 (Version 1)
Quarter: 2024Q3

REPORT INFORMATION
  Report Type: Spontaneous
  Country: SK (occurrence: SK)
  Receive Date: 20240808
  Receipt Date: 20240808
  Transmission Date: 20241017
  Serious: Yes (Hospitalization)
  Sender: PFIZER
  Company Number: None

PATIENT
  Age: 20 Year
  Sex: Female
  Weight: 85 kg

DRUGS (2)
  1. CLINDAMYCIN [Suspect]
     Active Substance: CLINDAMYCIN
     Indication: Tooth disorder
     Dosage: 2 DF
  2. FLECTOR [Suspect]
     Active Substance: DICLOFENAC EPOLAMINE
     Indication: Tooth disorder
     Dosage: 1 DF

REACTIONS (9)
  - Pruritus [Recovered/Resolved]
  - Tachycardia [Recovered/Resolved]
  - Rash maculo-papular [Recovered/Resolved]
  - Body temperature increased [Recovered/Resolved]
  - Eyelid oedema [Recovered/Resolved]
  - Tongue oedema [Recovered/Resolved]
  - Face oedema [Recovered/Resolved]
  - Blood pressure decreased [Recovered/Resolved]
  - Chills [Recovered/Resolved]

NARRATIVE: CASE EVENT DATE: 20210904
